FAERS Safety Report 17426578 (Version 1)
Quarter: 2020Q1

REPORT INFORMATION
  Report Type: Spontaneous
  Country: GB (occurrence: GB)
  Receive Date: 20200218
  Receipt Date: 20200218
  Transmission Date: 20200409
  Serious: Yes (Other)
  Sender: FDA-Public Use
  Company Number: GB-ALKEM LABORATORIES LIMITED-GB-ALKEM-2019-08627

PATIENT
  Age: 28 Year
  Sex: Male
  Weight: 310 kg

DRUGS (2)
  1. LIRAGLUTIDE [Concomitant]
     Active Substance: LIRAGLUTIDE
     Indication: OBESITY
     Dosage: 3 MILLIGRAM, QD
     Route: 065
  2. LINEZOLID. [Suspect]
     Active Substance: LINEZOLID
     Indication: CELLULITIS
     Dosage: 600 MILLIGRAM, TID
     Route: 048

REACTIONS (2)
  - Bone marrow failure [Unknown]
  - Off label use [Unknown]
